FAERS Safety Report 8605804-7 (Version None)
Quarter: 2012Q3

REPORT INFORMATION
  Report Type: 
  Country: None (occurrence: None)
  Receive Date: 20120820
  Receipt Date: 20120807
  Transmission Date: 20120928
  Serious: Yes (Hospitalization)
  Sender: FDA-Public Use
  Company Number: US-GLAXOSMITHKLINE-A0879363A

PATIENT
  Age: 57 Year
  Sex: Male

DRUGS (2)
  1. AVANDIA [Suspect]
     Indication: TYPE 2 DIABETES MELLITUS
     Dosage: 2MG PER DAY
     Route: 048
     Dates: start: 20050601, end: 20050701
  2. AVANDAMET [Suspect]
     Indication: DIABETES MELLITUS
     Route: 048
     Dates: start: 20040501, end: 20060201

REACTIONS (5)
  - ATRIAL FIBRILLATION [None]
  - OEDEMA PERIPHERAL [None]
  - SICK SINUS SYNDROME [None]
  - CEREBROVASCULAR ACCIDENT [None]
  - HYPERTENSION [None]
